FAERS Safety Report 9194145 (Version 2)
Quarter: 2013Q1

REPORT INFORMATION
  Report Type: Spontaneous
  Country: US (occurrence: US)
  Receive Date: 20130327
  Receipt Date: 20130327
  Transmission Date: 20140127
  Serious: Yes (Hospitalization)
  Sender: FDA-Public Use
  Company Number: US-PERRIGO-13US002944

PATIENT
  Age: 23 Year
  Sex: Female
  Weight: 61.22 kg

DRUGS (1)
  1. ASPIRIN [Suspect]
     Indication: HEADACHE
     Dosage: APPROXIMATELY 4 TABLETS, THREE TIMES IN THE EVENING
     Route: 048
     Dates: start: 20130318, end: 20130318

REACTIONS (5)
  - Overdose [Recovered/Resolved]
  - Abdominal discomfort [Recovered/Resolved]
  - Haematemesis [Recovered/Resolved]
  - Hypoacusis [Recovered/Resolved]
  - Tinnitus [Recovered/Resolved]
